FAERS Safety Report 8067031-4 (Version None)
Quarter: 2012Q1

REPORT INFORMATION
  Report Type: 
  Country: None (occurrence: None)
  Receive Date: 20120124
  Receipt Date: 20120119
  Transmission Date: 20120608
  Serious: Yes (Hospitalization)
  Sender: FDA-Public Use
  Company Number: CA-ABBOTT-11P-028-0875630-00

PATIENT
  Sex: Female

DRUGS (2)
  1. EVA (NATURAL PRODUCT FROM ELK ANTLER) [Concomitant]
     Indication: PRODUCT USED FOR UNKNOWN INDICATION
  2. HUMIRA [Suspect]
     Indication: PSORIASIS
     Route: 058
     Dates: start: 20090525

REACTIONS (3)
  - GASTROINTESTINAL DISORDER [None]
  - NAUSEA [None]
  - GASTRIC DISORDER [None]
